FAERS Safety Report 12355101 (Version 1)
Quarter: 2016Q2

REPORT INFORMATION
  Report Type: Spontaneous
  Country: None (occurrence: US)
  Receive Date: 20160511
  Receipt Date: 20160511
  Transmission Date: 20160815
  Serious: No
  Sender: FDA-Public Use
  Company Number: US-ENDO PHARMACEUTICALS INC.-2015-003926

PATIENT
  Age: 28 Year
  Sex: Female
  Weight: 95.79 kg

DRUGS (2)
  1. GILDESS FE TABLETS [Suspect]
     Active Substance: ETHINYL ESTRADIOL\NORETHINDRONE ACETATE
     Indication: CONTRACEPTION
     Dosage: 1/20
     Route: 048
     Dates: start: 201305, end: 20151031
  2. GILDESS FE TABLETS [Suspect]
     Active Substance: ETHINYL ESTRADIOL\NORETHINDRONE ACETATE
     Indication: MENSTRUAL CYCLE MANAGEMENT

REACTIONS (5)
  - Amenorrhoea [Not Recovered/Not Resolved]
  - Oligomenorrhoea [Recovered/Resolved]
  - Sinusitis [Recovering/Resolving]
  - Menorrhagia [Recovered/Resolved]
  - Bronchitis [Recovering/Resolving]

NARRATIVE: CASE EVENT DATE: 201412
